FAERS Safety Report 7707159-9 (Version None)
Quarter: 2011Q3

REPORT INFORMATION
  Report Type: 
  Country: None (occurrence: None)
  Receive Date: 20110824
  Receipt Date: 20110816
  Transmission Date: 20111222
  Serious: Yes (Other)
  Sender: FDA-Public Use
  Company Number: ES-B.I. PHARMACEUTICALS,INC./RIDGEFIELD-2011-DE-04700BY

PATIENT
  Age: 59 Year
  Sex: Male

DRUGS (1)
  1. TELMISARTAN AND HYDROCHLOROTHIAZIDE [Suspect]
     Dosage: 80 MG
     Route: 048
     Dates: start: 20110701

REACTIONS (5)
  - MEMORY IMPAIRMENT [None]
  - NERVOUSNESS [None]
  - DEPRESSED MOOD [None]
  - BRADYKINESIA [None]
  - SPEECH DISORDER [None]
